FAERS Safety Report 17519700 (Version 1)
Quarter: 2020Q1

REPORT INFORMATION
  Report Type: Spontaneous
  Country: SE (occurrence: SE)
  Receive Date: 20200309
  Receipt Date: 20200309
  Transmission Date: 20200409
  Serious: No
  Sender: FDA-Public Use
  Company Number: SE-ELI_LILLY_AND_COMPANY-SE202002004762

PATIENT
  Age: 13 Year
  Sex: Female

DRUGS (1)
  1. OLANZAPINE. [Suspect]
     Active Substance: OLANZAPINE
     Indication: PRODUCT USED FOR UNKNOWN INDICATION
     Dosage: 2.5 MG, UNKNOWN
     Route: 065

REACTIONS (5)
  - Peripheral swelling [Recovering/Resolving]
  - Malaise [Recovering/Resolving]
  - Thrombophlebitis [Recovering/Resolving]
  - Fibrin D dimer increased [Recovering/Resolving]
  - Product use issue [Unknown]
